FAERS Safety Report 5061920-0 (Version None)
Quarter: 2006Q3

REPORT INFORMATION
  Report Type: 
  Country: None (occurrence: None)
  Receive Date: 20060720
  Receipt Date: 20060720
  Transmission Date: 20061208
  Serious: Yes (Other)
  Sender: FDA-Public Use
  Company Number: None

PATIENT
  Sex: Female
  Weight: 81.6475 kg

DRUGS (1)
  1. PARAGUARD-IUD [Suspect]
     Dates: start: 20040302, end: 20060119

REACTIONS (1)
  - PREGNANCY WITH CONTRACEPTIVE DEVICE [None]
